FAERS Safety Report 6502550-0 (Version None)
Quarter: 2009Q4

REPORT INFORMATION
  Report Type: 
  Country: None (occurrence: None)
  Receive Date: 20091217
  Receipt Date: 20091207
  Transmission Date: 20100525
  Serious: Yes (Hospitalization)
  Sender: FDA-Public Use
  Company Number: ES-RANBAXY-2009RR-29459

PATIENT
  Age: 54 Year
  Sex: Female

DRUGS (2)
  1. IBUPROFEN [Suspect]
     Indication: BACK PAIN
  2. PARACETAMOL [Concomitant]
     Indication: BACK PAIN

REACTIONS (1)
  - TUBULOINTERSTITIAL NEPHRITIS [None]
